FAERS Safety Report 5021371-1 (Version None)
Quarter: 2006Q2

REPORT INFORMATION
  Report Type: 
  Country: None (occurrence: None)
  Receive Date: 20060608
  Receipt Date: 20060417
  Transmission Date: 20061013
  Serious: No
  Sender: FDA-Public Use
  Company Number: US-BRISTOL-MYERS SQUIBB COMPANY-13347554

PATIENT
  Sex: Male
  Weight: 84 kg

DRUGS (3)
  1. SINEMET [Suspect]
     Indication: PARKINSON'S DISEASE
  2. MOTRIN [Concomitant]
  3. VICODIN [Concomitant]

REACTIONS (1)
  - DRUG INEFFECTIVE [None]
